FAERS Safety Report 4458062-1 (Version None)
Quarter: 2004Q3

REPORT INFORMATION
  Report Type: 
  Country: None (occurrence: None)
  Receive Date: 20040922
  Receipt Date: 20040906
  Transmission Date: 20050211
  Serious: Yes (Death)
  Sender: FDA-Public Use
  Company Number: JP_040904426

PATIENT
  Age: 75 Year
  Sex: Female

DRUGS (2)
  1. GEMZAR [Suspect]
     Indication: LUNG ADENOCARCINOMA
     Dosage: 1000 MG OTHER
     Dates: start: 20040708, end: 20040715
  2. IRINOTECAN HYDROCHLORIDE [Concomitant]

REACTIONS (2)
  - FATIGUE [None]
  - SUDDEN DEATH [None]
